FAERS Safety Report 16047596 (Version 2)
Quarter: 2019Q1

REPORT INFORMATION
  Report Type: Spontaneous
  Country: IT (occurrence: IT)
  Receive Date: 20190307
  Receipt Date: 20190311
  Transmission Date: 20190418
  Serious: Yes (Other)
  Sender: FDA-Public Use
  Company Number: PHHY2019IT045730

PATIENT
  Age: 59 Year
  Sex: Female

DRUGS (1)
  1. HYDROCHLOROTHIAZIDE, LOSARTAN [Suspect]
     Active Substance: HYDROCHLOROTHIAZIDE\LOSARTAN
     Indication: ESSENTIAL HYPERTENSION
     Dosage: 50 MG-12.5 MG
     Route: 065

REACTIONS (5)
  - Pemphigus [Recovered/Resolved]
  - Erythema [Unknown]
  - Skin erosion [Unknown]
  - Seborrhoea [Recovered/Resolved]
  - Scab [Unknown]
